FAERS Safety Report 9741480 (Version 4)
Quarter: 2014Q2

REPORT INFORMATION
  Report Type: Spontaneous
  Country: US (occurrence: US)
  Receive Date: 20131209
  Receipt Date: 20140603
  Transmission Date: 20141212
  Serious: Yes (Hospitalization, Disabling)
  Sender: FDA-Public Use
  Company Number: US-JNJFOC-20131117232

PATIENT
  Age: 54 Year
  Sex: Male
  Weight: 113.4 kg

DRUGS (2)
  1. TYLENOL COLD AND FLU SEVERE WARMING HONEY LEMON [Suspect]
     Indication: INFLUENZA
     Dosage: 1-2 TSP, AS NEEDED
     Route: 048
     Dates: start: 20131117, end: 20131119
  2. TYLENOL COLD AND FLU SEVERE WARMING HONEY LEMON [Suspect]
     Indication: NASOPHARYNGITIS
     Dosage: 1-2 TSP, AS NEEDED
     Route: 048
     Dates: start: 20131117, end: 20131119

REACTIONS (2)
  - Cellulitis [Recovered/Resolved with Sequelae]
  - Epidermolysis [Recovered/Resolved with Sequelae]
